FAERS Safety Report 8388182-0 (Version None)
Quarter: 2012Q2

REPORT INFORMATION
  Report Type: 
  Country: None (occurrence: None)
  Receive Date: 20120525
  Receipt Date: 20120522
  Transmission Date: 20120825
  Serious: Yes (Disabling)
  Sender: FDA-Public Use
  Company Number: US-PFIZER INC-2012123848

PATIENT
  Sex: Female
  Weight: 83.9 kg

DRUGS (4)
  1. XALATAN [Suspect]
     Indication: MACULAR DEGENERATION
  2. XALATAN [Suspect]
     Indication: GLAUCOMA
     Dosage: 1 DROP IN EACH EYE DAILY
     Route: 047
  3. COSOPT [Concomitant]
     Indication: GLAUCOMA
     Dosage: 1 DROP IN EACH EYE TWO TIMES A DAY
     Route: 047
  4. COSOPT [Concomitant]
     Indication: MACULAR DEGENERATION

REACTIONS (2)
  - HYPOACUSIS [None]
  - DEAFNESS UNILATERAL [None]
